FAERS Safety Report 14135961 (Version 1)
Quarter: 2017Q4

REPORT INFORMATION
  Report Type: Spontaneous
  Country: US (occurrence: US)
  Receive Date: 20171026
  Receipt Date: 20171026
  Transmission Date: 20180321
  Serious: Yes (Hospitalization)
  Sender: FDA-Public Use
  Company Number: US-BAYER-2017-200278

PATIENT
  Age: 8 Year
  Sex: Male

DRUGS (1)
  1. MIRALAX [Suspect]
     Active Substance: POLYETHYLENE GLYCOL 3350
     Indication: CONSTIPATION
     Dosage: DOSE VARIED, DAILY
     Dates: start: 200904, end: 201501

REACTIONS (6)
  - Sensory processing disorder [Recovering/Resolving]
  - Dysbacteriosis [Recovering/Resolving]
  - Dysgraphia [Recovered/Resolved]
  - Mental impairment [Recovered/Resolved]
  - Seizure [Recovering/Resolving]
  - Anxiety [Recovering/Resolving]

NARRATIVE: CASE EVENT DATE: 20140523
